FAERS Safety Report 6041429-8 (Version None)
Quarter: 2009Q1

REPORT INFORMATION
  Report Type: 
  Country: None (occurrence: None)
  Receive Date: 20090116
  Receipt Date: 20081014
  Transmission Date: 20090719
  Serious: No
  Sender: FDA-Public Use
  Company Number: US-BRISTOL-MYERS SQUIBB COMPANY-14369193

PATIENT
  Age: 29 Year
  Sex: Female
  Weight: 140 kg

DRUGS (2)
  1. ABILIFY [Suspect]
     Indication: DEPRESSION
     Dosage: REDUCED TO 5MG DAILY LATER TO 2.5MG DAILY
  2. IBUPROFEN [Concomitant]

REACTIONS (4)
  - ABNORMAL BEHAVIOUR [None]
  - CRYING [None]
  - SOMNOLENCE [None]
  - VOMITING [None]
